FAERS Safety Report 18821889 (Version 1)
Quarter: 2021Q1

REPORT INFORMATION
  Report Type: Spontaneous
  Country: US (occurrence: US)
  Receive Date: 20210202
  Receipt Date: 20210202
  Transmission Date: 20210419
  Serious: No
  Sender: FDA-Public Use
  Company Number: US-CELGENEUS-USA-20210105898

PATIENT
  Age: 59 Year
  Sex: Female
  Weight: 74.46 kg

DRUGS (3)
  1. ABRAXANE [Suspect]
     Active Substance: PACLITAXEL
     Indication: TRIPLE NEGATIVE BREAST CANCER
     Route: 041
     Dates: start: 202011
  2. TRAMADOL. [Concomitant]
     Active Substance: TRAMADOL
     Indication: PAIN
     Route: 065
  3. TECENTRIQ [Concomitant]
     Active Substance: ATEZOLIZUMAB
     Indication: PRODUCT USED FOR UNKNOWN INDICATION
     Route: 065

REACTIONS (7)
  - Contusion [Unknown]
  - Taste disorder [Unknown]
  - Pain in extremity [Unknown]
  - Urticaria [Unknown]
  - Dry mouth [Unknown]
  - Triple negative breast cancer [Unknown]
  - Muscle strain [Unknown]

NARRATIVE: CASE EVENT DATE: 202011
